FAERS Safety Report 10816579 (Version 1)
Quarter: 2015Q1

REPORT INFORMATION
  Report Type: Spontaneous
  Country: KZ (occurrence: KZ)
  Receive Date: 20150218
  Receipt Date: 20150218
  Transmission Date: 20150721
  Serious: Yes (Life-Threatening, Other)
  Sender: FDA-Public Use
  Company Number: KZ-MYLANLABS-2015M1005075

PATIENT

DRUGS (9)
  1. VALPROATE [Suspect]
     Active Substance: VALPROATE SODIUM
     Indication: STATUS EPILEPTICUS
     Dosage: 2G/DAY
     Route: 065
  2. ISOFLURANE. [Suspect]
     Active Substance: ISOFLURANE
     Dosage: 0.2 MAC
     Route: 045
  3. PROPOFOL. [Suspect]
     Active Substance: PROPOFOL
     Dosage: 0.09 MG/KG/MINUTE
     Route: 065
  4. THIOPENTAL SODIUM. [Suspect]
     Active Substance: THIOPENTAL SODIUM
     Indication: STATUS EPILEPTICUS
     Dosage: 0.04 MG/KG/MINUTE; INCREASED TO 0.07 MG/KG/MINUTE
     Route: 065
  5. ISOFLURANE. [Suspect]
     Active Substance: ISOFLURANE
     Indication: STATUS EPILEPTICUS
     Dosage: MAC OF 0.7 REDUCED TO 0.2 MAC
     Route: 045
  6. DIAZEPAM. [Suspect]
     Active Substance: DIAZEPAM
     Indication: STATUS EPILEPTICUS
     Dosage: 0.15 MG/KG REPEATED AFTER 5MINUTES
     Route: 040
  7. THIOPENTAL SODIUM. [Suspect]
     Active Substance: THIOPENTAL SODIUM
     Dosage: 0.07 MG/KG/MINUTE
     Route: 065
  8. CARBAMAZEPINE. [Suspect]
     Active Substance: CARBAMAZEPINE
     Indication: STATUS EPILEPTICUS
     Route: 065
  9. PROPOFOL. [Suspect]
     Active Substance: PROPOFOL
     Indication: STATUS EPILEPTICUS
     Dosage: 0.027 MG/KG/MINUTE; INCREASED TO 0.09 MG/KG/MINUTE
     Route: 065

REACTIONS (3)
  - Drug ineffective [Unknown]
  - Hypotension [Recovering/Resolving]
  - Liver injury [Unknown]
